FAERS Safety Report 4472028-7 (Version None)
Quarter: 2004Q4

REPORT INFORMATION
  Report Type: 
  Country: None (occurrence: None)
  Receive Date: 20041006
  Receipt Date: 20040922
  Transmission Date: 20050328
  Serious: Yes (Death)
  Sender: FDA-Public Use
  Company Number: A-CH2004-07487

PATIENT
  Age: 9 Month
  Sex: Male
  Weight: 5.2 kg

DRUGS (1)
  1. TRACLEER [Suspect]
     Indication: PULMONARY HYPERTENSION
     Dosage: 16 MG, BID, ORAL
     Route: 048
     Dates: start: 20040810, end: 20040916

REACTIONS (3)
  - BRONCHOPULMONARY DYSPLASIA [None]
  - PREMATURE BABY [None]
  - PULMONARY HYPERTENSION [None]
